FAERS Safety Report 8886759 (Version 3)
Quarter: 2012Q4

REPORT INFORMATION
  Report Type: 
  Country: US (occurrence: US)
  Receive Date: 20121105
  Receipt Date: 20121213
  Transmission Date: 20130627
  Serious: No
  Sender: FDA-Public Use
  Company Number: US-VERTEX PHARMACEUTICAL INC.-2012-023993

PATIENT
  Sex: Female
  Weight: 64 kg

DRUGS (8)
  1. VX-950 (TELAPREVIR) [Suspect]
     Indication: HEPATITIS C
     Dosage: 750 mg, tid
     Route: 048
     Dates: start: 20121019
  2. PEGASYS [Concomitant]
     Indication: HEPATITIS C
     Dosage: 400 mg, bid
     Route: 048
     Dates: start: 20121019
  3. RIBAVIRIN [Concomitant]
     Indication: HEPATITIS C
     Dosage: UNK
     Dates: start: 20121019
  4. ANASTROZOLE [Concomitant]
     Dosage: 1 mg, qd
  5. ALLEGRA [Concomitant]
     Dosage: 60 mg, qd
  6. ENALAPRIL MALEATE [Concomitant]
     Dosage: 5 mg, qd
  7. EQL MILK THISTLE [Concomitant]
     Dosage: 175 mg, UNK
  8. MULTIVITAMIN                       /00097801/ [Concomitant]
     Dosage: UNK, qd

REACTIONS (7)
  - Vulvovaginal burning sensation [Unknown]
  - Vulvovaginal dryness [Unknown]
  - Local swelling [Unknown]
  - Fatigue [Unknown]
  - Swelling face [Unknown]
  - Rash erythematous [Unknown]
  - Rash [Recovered/Resolved]
